FAERS Safety Report 18315663 (Version 3)
Quarter: 2020Q4

REPORT INFORMATION
  Report Type: Report from Study
  Country: US (occurrence: US)
  Receive Date: 20200926
  Receipt Date: 20201229
  Transmission Date: 20210113
  Serious: Yes (Hospitalization)
  Sender: FDA-Public Use
  Company Number: NVSC2020US260582

PATIENT
  Sex: Female

DRUGS (1)
  1. ENTRESTO [Suspect]
     Active Substance: SACUBITRIL\VALSARTAN
     Indication: PRODUCT USED FOR UNKNOWN INDICATION
     Dosage: 100 MG, BID (49/51 MG)
     Route: 048
     Dates: start: 202004

REACTIONS (9)
  - Joint swelling [Unknown]
  - Pneumonia [Unknown]
  - Hypertension [Unknown]
  - Renal failure [Unknown]
  - Apathy [Unknown]
  - Arthralgia [Unknown]
  - Fatigue [Unknown]
  - Sepsis [Unknown]
  - Memory impairment [Unknown]
